FAERS Safety Report 7864596-X (Version None)
Quarter: 2011Q4

REPORT INFORMATION
  Report Type: 
  Country: None (occurrence: None)
  Receive Date: 20111028
  Receipt Date: 20110307
  Transmission Date: 20120403
  Serious: No
  Sender: FDA-Public Use
  Company Number: US-GLAXOSMITHKLINE-A0917835A

PATIENT
  Age: 69 Year
  Sex: Female

DRUGS (1)
  1. SUMATRIPTAN SUCCINATE [Suspect]
     Indication: MIGRAINE
     Dosage: 20MG AS DIRECTED
     Route: 045
     Dates: start: 20110204, end: 20110204

REACTIONS (1)
  - THERAPEUTIC RESPONSE DECREASED [None]
